FAERS Safety Report 8997759 (Version 1)
Quarter: 2013Q1

REPORT INFORMATION
  Report Type: Spontaneous
  Country: NL (occurrence: NL)
  Receive Date: 20130104
  Receipt Date: 20130104
  Transmission Date: 20140127
  Serious: Yes (Death, Hospitalization)
  Sender: FDA-Public Use
  Company Number: NL-TEVA-378157ISR

PATIENT
  Age: 49 Year
  Sex: Male
  Weight: 93 kg

DRUGS (3)
  1. PROPRANOLOL [Suspect]
     Indication: VARICOSE VEIN
     Dosage: 80 MILLIGRAM DAILY;
     Route: 048
     Dates: start: 20090924, end: 20121129
  2. PEGASYS [Suspect]
     Indication: HEPATITIS C
     Dosage: EXTRA INFO: 180MCG
     Route: 058
     Dates: start: 20120112
  3. COPEGUS [Interacting]
     Indication: HEPATITIS C
     Route: 048
     Dates: start: 20120112

REACTIONS (4)
  - Myocarditis [Fatal]
  - Cardiomyopathy [Fatal]
  - Cardiogenic shock [None]
  - Stress cardiomyopathy [None]
